FAERS Safety Report 10811757 (Version 1)
Quarter: 2015Q1

REPORT INFORMATION
  Report Type: Report from Study
  Country: US (occurrence: US)
  Receive Date: 20150217
  Receipt Date: 20150217
  Transmission Date: 20150721
  Serious: No
  Sender: FDA-Public Use
  Company Number: US-ABBVIE-14K-163-1216856-00

PATIENT
  Age: 63 Year
  Sex: Female

DRUGS (11)
  1. RESTASIS [Concomitant]
     Active Substance: CYCLOSPORINE
     Indication: DRY EYE
     Dosage: 2 DROPS IN EACH EYE
  2. VITAMIN D3 [Concomitant]
     Active Substance: CHOLECALCIFEROL
     Indication: PROPHYLAXIS
  3. KURCUMIN (TUMERIC) [Concomitant]
     Indication: PROPHYLAXIS
  4. CELEBREX [Concomitant]
     Active Substance: CELECOXIB
     Indication: ARTHRITIS
     Dosage: 200 MG BID PRN, RARELY USED
  5. LUTENE [Concomitant]
     Indication: EYE DISORDER
  6. COD LIVER OIL [Concomitant]
     Active Substance: COD LIVER OIL
     Indication: SKIN DISORDER
  7. COD LIVER OIL [Concomitant]
     Active Substance: COD LIVER OIL
     Indication: VARICOSE VEIN
  8. HUMIRA [Suspect]
     Active Substance: ADALIMUMAB
     Indication: RHEUMATOID ARTHRITIS
     Dates: start: 20140205
  9. CELEBREX [Concomitant]
     Active Substance: CELECOXIB
     Indication: INTERVERTEBRAL DISC DEGENERATION
  10. BILBERRY [Concomitant]
     Active Substance: BILBERRY
     Indication: EYE DISORDER
  11. ASU (AVOCADO, SOYBEANS, UNFATONIFIABLES) [Concomitant]
     Indication: ARTHROPATHY

REACTIONS (12)
  - Injection site erythema [Unknown]
  - Injection site pruritus [Recovered/Resolved]
  - Injection site erythema [Recovered/Resolved]
  - Injection site bruising [Recovered/Resolved]
  - Injection site erythema [Recovered/Resolved]
  - Injection site pain [Recovered/Resolved]
  - Injection site pain [Recovered/Resolved]
  - Injection site papule [Recovered/Resolved]
  - Injection site bruising [Recovered/Resolved]
  - Injection site warmth [Not Recovered/Not Resolved]
  - Injection site pain [Not Recovered/Not Resolved]
  - Injection site pain [Recovered/Resolved]

NARRATIVE: CASE EVENT DATE: 20140205
